FAERS Safety Report 18634088 (Version 2)
Quarter: 2022Q2

REPORT INFORMATION
  Report Type: Report from Study
  Country: BE (occurrence: BE)
  Receive Date: 20201218
  Receipt Date: 20220613
  Transmission Date: 20220721
  Serious: Yes (Hospitalization, Other)
  Sender: FDA-Public Use
  Company Number: BE-CELGENE-BEL-20190700514

PATIENT
  Age: 86 Year
  Sex: Female

DRUGS (7)
  1. METHYLPREDNISOLONE [Suspect]
     Active Substance: METHYLPREDNISOLONE
     Indication: Plasma cell myeloma
     Dosage: 32 MG, 1X/DAY
     Dates: start: 20190120, end: 20190621
  2. METHYLPREDNISOLONE [Suspect]
     Active Substance: METHYLPREDNISOLONE
     Dosage: 32 MG, 1X/DAY
     Dates: start: 20190424, end: 20190425
  3. METHYLPREDNISOLONE [Suspect]
     Active Substance: METHYLPREDNISOLONE
     Dosage: 32 MG, 1X/DAY
     Dates: start: 20190430, end: 20190501
  4. METHYLPREDNISOLONE [Suspect]
     Active Substance: METHYLPREDNISOLONE
     Dosage: 32 MG, 1X/DAY
     Route: 048
     Dates: start: 20190507, end: 20190508
  5. METHYLPREDNISOLONE [Suspect]
     Active Substance: METHYLPREDNISOLONE
     Dosage: 32 MG, 1X/DAY
     Dates: start: 20190613, end: 20190614
  6. REVLIMID [Suspect]
     Active Substance: LENALIDOMIDE
     Indication: Plasma cell myeloma
     Dosage: 15 MG, 1X/DAY
     Route: 048
     Dates: start: 20190424, end: 20190524
  7. REVLIMID [Suspect]
     Active Substance: LENALIDOMIDE
     Dosage: 15 MG, 1X/DAY
     Route: 048
     Dates: start: 20190530, end: 20190620

REACTIONS (2)
  - Pneumonia [Recovered/Resolved]
  - Pulmonary embolism [Recovered/Resolved]

NARRATIVE: CASE EVENT DATE: 20190513
